FAERS Safety Report 9552113 (Version 1)
Quarter: 2013Q3

REPORT INFORMATION
  Report Type: Spontaneous
  Country: US (occurrence: None)
  Receive Date: 20130923
  Receipt Date: 20130923
  Transmission Date: 20140515
  Serious: Yes (Life-Threatening, Hospitalization)
  Sender: FDA-Public Use
  Company Number: 2013P1019306

PATIENT
  Age: 56 Year
  Sex: Male

DRUGS (6)
  1. DIPHENHYDRAMINE [Suspect]
     Dosage: UP TO 1.2 GM 1X
  2. METOPROLOL [Suspect]
     Dosage: UPT O 500 MG X1
  3. LISINOPRIL [Suspect]
  4. ISOSORBIDE DINITRATE [Suspect]
  5. FUROSEMIDE [Suspect]
  6. INSULIN GLARGINE [Suspect]
     Dosage: UP TO 3,300 UNITS;X1;

REACTIONS (6)
  - Somnolence [None]
  - Hypoglycaemia [None]
  - Overdose [None]
  - Suicide attempt [None]
  - Hypotension [None]
  - Heart rate decreased [None]
